FAERS Safety Report 6528083-3 (Version None)
Quarter: 2010Q1

REPORT INFORMATION
  Report Type: 
  Country: None (occurrence: None)
  Receive Date: 20100105
  Receipt Date: 20100105
  Transmission Date: 20100710
  Serious: Yes (Hospitalization)
  Sender: FDA-Public Use
  Company Number: None

PATIENT
  Age: 62 Year
  Sex: Male
  Weight: 91.6 kg

DRUGS (1)
  1. CISPLATIN [Suspect]
     Indication: NEOPLASM MALIGNANT
     Dosage: 150 MG ONCE IV
     Route: 042
     Dates: start: 20091223, end: 20091230

REACTIONS (1)
  - FEBRILE NEUTROPENIA [None]
